FAERS Safety Report 9153096 (Version 1)
Quarter: 2013Q1

REPORT INFORMATION
  Report Type: Spontaneous
  Country: US (occurrence: None)
  Receive Date: 20130304
  Receipt Date: 20130304
  Transmission Date: 20140127
  Serious: Yes (Hospitalization)
  Sender: FDA-Public Use
  Company Number: None

PATIENT
  Age: 51 Year
  Sex: Female
  Weight: 47.3 kg

DRUGS (17)
  1. QUETIAPINE [Suspect]
  2. GUAIFENESIN/DEXTROMETHORPHAN [Concomitant]
  3. MAGNESIUM HYDROXIDE [Concomitant]
  4. HYDROXYZINE [Concomitant]
  5. TRAZODONE [Concomitant]
  6. ACETAMINOPHEN [Concomitant]
  7. BISACODYL [Concomitant]
  8. QUETIAPINE [Concomitant]
  9. ACYCLOVIR [Concomitant]
  10. PERIOGARD [Concomitant]
  11. SODIUM CHLORIDE 2% EYEDROPS [Concomitant]
  12. TRIAMCINOLONE CREAM [Concomitant]
  13. OMEPRAZOLE [Concomitant]
  14. CETIRIZINE [Concomitant]
  15. ARTIFICIAL TEARS [Concomitant]
  16. NYSTATIN OINTMENT [Concomitant]
  17. CEROVITE MULTIVITAMIN [Concomitant]

REACTIONS (3)
  - Rash generalised [None]
  - Urticaria [None]
  - Dermatitis [None]
